FAERS Safety Report 5141678-7 (Version None)
Quarter: 2006Q4

REPORT INFORMATION
  Report Type: 
  Country: None (occurrence: None)
  Receive Date: 20061026
  Receipt Date: 20061023
  Transmission Date: 20070319
  Serious: Yes (Death, Other)
  Sender: FDA-Public Use
  Company Number: 163-20785-06040483

PATIENT
  Age: 71 Year
  Sex: Male

DRUGS (6)
  1. THALOMID [Suspect]
     Indication: MULTIPLE MYELOMA
     Dosage: 200 MG, DAILY, ORAL; SEE IMAGE
     Route: 048
     Dates: start: 20030423, end: 20040107
  2. THALOMID [Suspect]
     Indication: MULTIPLE MYELOMA
     Dosage: 200 MG, DAILY, ORAL; SEE IMAGE
     Route: 048
     Dates: start: 20060219
  3. THALOMID [Suspect]
     Indication: MULTIPLE MYELOMA
     Dosage: 200 MG, DAILY, ORAL; SEE IMAGE
     Route: 048
     Dates: start: 20060301
  4. DEXAMETHASONE TAB [Concomitant]
  5. ALLOPURINOL [Concomitant]
  6. TOPROL-XL [Concomitant]

REACTIONS (7)
  - ACTIVITIES OF DAILY LIVING IMPAIRED [None]
  - DIABETES MELLITUS [None]
  - HYPERCALCAEMIA [None]
  - HYPERVISCOSITY SYNDROME [None]
  - MALAISE [None]
  - RENAL FAILURE [None]
  - TERMINAL STATE [None]
